FAERS Safety Report 7134062-8 (Version None)
Quarter: 2010Q4

REPORT INFORMATION
  Report Type: 
  Country: None (occurrence: None)
  Receive Date: 20101117
  Receipt Date: 20101104
  Transmission Date: 20110411
  Serious: Yes (Disabling)
  Sender: FDA-Public Use
  Company Number: 012008

PATIENT
  Age: 84 Year
  Sex: Female

DRUGS (1)
  1. MACUGEN [Suspect]

REACTIONS (1)
  - PSYCHOTIC DISORDER [None]
